FAERS Safety Report 11219865 (Version 1)
Quarter: 2015Q2

REPORT INFORMATION
  Report Type: Spontaneous
  Country: FR (occurrence: FR)
  Receive Date: 20150625
  Receipt Date: 20150625
  Transmission Date: 20150821
  Serious: Yes (Hospitalization)
  Sender: FDA-Public Use
  Company Number: FR-SA-2015SA089988

PATIENT
  Age: 60 Year
  Sex: Male

DRUGS (15)
  1. CISPLATIN. [Suspect]
     Active Substance: CISPLATIN
     Indication: SQUAMOUS CELL CARCINOMA
     Route: 065
     Dates: start: 201401, end: 201402
  2. DOMPERIDONE [Concomitant]
     Active Substance: DOMPERIDONE
  3. CISPLATIN. [Suspect]
     Active Substance: CISPLATIN
     Indication: SQUAMOUS CELL CARCINOMA
     Dosage: ROUTE: INTRAVENOUS INFUSION
     Dates: start: 201505, end: 201505
  4. LASILIX [Suspect]
     Active Substance: FUROSEMIDE
     Route: 065
  5. CANDESARTAN CILEXETIL. [Suspect]
     Active Substance: CANDESARTAN CILEXETIL
     Route: 048
     Dates: end: 20150528
  6. MACROGOL 4000 [Concomitant]
     Active Substance: POLYETHYLENE GLYCOL 4000
  7. LEVOTHYROX [Concomitant]
     Active Substance: LEVOTHYROXINE
  8. KEPPRA [Concomitant]
     Active Substance: LEVETIRACETAM
     Route: 065
  9. ALLOPURINOL. [Concomitant]
     Active Substance: ALLOPURINOL
  10. TAXOTERE [Suspect]
     Active Substance: DOCETAXEL
     Dosage: ROUTE: INTRAVENOUS INFUSION
     Dates: start: 201505, end: 201505
  11. NEBIVOLOL [Concomitant]
     Active Substance: NEBIVOLOL
  12. KARDEGIC [Concomitant]
     Active Substance: ASPIRIN LYSINE
     Dosage: POWDER FOR ORAL SOLUTION IN SACHET-DOSE
     Route: 048
  13. ALPRAZOLAM. [Concomitant]
     Active Substance: ALPRAZOLAM
  14. THERALENE [Concomitant]
     Active Substance: TRIMEPRAZINE
     Dosage: FILM COATED DIVISIBLE TABLET
     Route: 065
  15. LASILIX [Suspect]
     Active Substance: FUROSEMIDE
     Route: 048

REACTIONS (3)
  - Vomiting [Recovered/Resolved]
  - Neuralgia [Unknown]
  - Acute kidney injury [Recovered/Resolved]

NARRATIVE: CASE EVENT DATE: 201505
